FAERS Safety Report 10768583 (Version 1)
Quarter: 2015Q1

REPORT INFORMATION
  Report Type: Spontaneous
  Country: US (occurrence: None)
  Receive Date: 20150205
  Receipt Date: 20150205
  Transmission Date: 20150721
  Serious: Yes (Death, Hospitalization)
  Sender: FDA-Public Use
  Company Number: None

PATIENT
  Age: 68 Year
  Sex: Male
  Weight: 70.6 kg

DRUGS (10)
  1. LIPITOR [Concomitant]
     Active Substance: ATORVASTATIN CALCIUM
  2. LEVEMIR [Concomitant]
     Active Substance: INSULIN DETEMIR
  3. ALTACE [Concomitant]
     Active Substance: RAMIPRIL
  4. NOVOLOG [Concomitant]
     Active Substance: INSULIN ASPART
  5. FOSAMAX [Concomitant]
     Active Substance: ALENDRONATE SODIUM
  6. CLARITIN [Concomitant]
     Active Substance: LORATADINE
  7. PLAVIX [Suspect]
     Active Substance: CLOPIDOGREL BISULFATE
     Indication: CORONARY ARTERY DISEASE
     Route: 048
  8. PLAVIX [Suspect]
     Active Substance: CLOPIDOGREL BISULFATE
     Indication: STENT PLACEMENT
     Route: 048
  9. LEVOTHROID [Concomitant]
     Active Substance: LEVOTHYROXINE SODIUM
  10. NTG [Concomitant]
     Active Substance: NITROGLYCERIN

REACTIONS (7)
  - Subdural haematoma [None]
  - Brain stem infarction [None]
  - Fall [None]
  - Brain herniation [None]
  - Cerebrovascular accident [None]
  - Intracranial pressure increased [None]
  - Unresponsive to stimuli [None]

NARRATIVE: CASE EVENT DATE: 20141003
